FAERS Safety Report 8590489-9 (Version None)
Quarter: 2012Q3

REPORT INFORMATION
  Report Type: 
  Country: None (occurrence: None)
  Receive Date: 20120813
  Receipt Date: 20120807
  Transmission Date: 20120928
  Serious: Yes (Hospitalization)
  Sender: FDA-Public Use
  Company Number: JP-PFIZER INC-2012136525

PATIENT
  Age: 53 Year
  Sex: Female
  Weight: 45.7 kg

DRUGS (8)
  1. BROCIN-CODEINE [Concomitant]
     Dosage: 2 ML, AS NEEDED
     Route: 048
     Dates: start: 20120602
  2. BROCIN-CODEINE [Concomitant]
     Dosage: 2 ML, AS NEEDED
     Route: 048
     Dates: start: 20120521
  3. SENNOSIDE [Concomitant]
     Indication: CONSTIPATION
     Dosage: 24 MG, AS NEEDED
     Route: 065
     Dates: start: 20120525
  4. PRIMPERAN TAB [Concomitant]
     Dosage: 5 MG, 3X/DAY
     Route: 048
     Dates: start: 20120522
  5. CRIZOTINIB [Suspect]
     Indication: NON-SMALL CELL LUNG CANCER
     Dosage: 250 MG, 2X/DAY
     Route: 048
     Dates: start: 20120522, end: 20120605
  6. LEVOFLOXACIN [Concomitant]
     Dosage: 500 MG, 1X/DAY
     Route: 065
     Dates: start: 20120602
  7. MOTILIUM [Concomitant]
     Dosage: UNK
     Route: 054
     Dates: start: 20120523
  8. PROCHLORPERAZINE [Concomitant]
     Dosage: 5 MG, 3X/DAY
     Route: 048
     Dates: start: 20120523

REACTIONS (1)
  - INTERSTITIAL LUNG DISEASE [None]
